FAERS Safety Report 4789921-8 (Version None)
Quarter: 2005Q4

REPORT INFORMATION
  Report Type: 
  Country: None (occurrence: None)
  Receive Date: 20051006
  Receipt Date: 20050927
  Transmission Date: 20060501
  Serious: Yes (Hospitalization)
  Sender: FDA-Public Use
  Company Number: US-MERCK-0509USA04694

PATIENT
  Sex: Female
  Weight: 82 kg

DRUGS (1)
  1. VIOXX [Suspect]
     Route: 048
     Dates: start: 20031124, end: 20040505

REACTIONS (5)
  - AMNESIA [None]
  - CEREBROVASCULAR ACCIDENT [None]
  - DIZZINESS [None]
  - KIDNEY INFECTION [None]
  - LOSS OF CONSCIOUSNESS [None]
